FAERS Safety Report 8493524-1 (Version None)
Quarter: 2012Q3

REPORT INFORMATION
  Report Type: 
  Country: None (occurrence: None)
  Receive Date: 20120706
  Receipt Date: 20120629
  Transmission Date: 20120928
  Serious: Yes (Death)
  Sender: FDA-Public Use
  Company Number: US-INCYTE CORPORATION-2012IN001050

PATIENT
  Sex: Female

DRUGS (1)
  1. JAKAFI [Suspect]
     Dosage: NA

REACTIONS (1)
  - DEATH [None]
